FAERS Safety Report 6929265-9 (Version None)
Quarter: 2010Q3

REPORT INFORMATION
  Report Type: 
  Country: None (occurrence: None)
  Receive Date: 20100811
  Receipt Date: 20100728
  Transmission Date: 20110219
  Serious: Yes (Life-Threatening, Hospitalization)
  Sender: FDA-Public Use
  Company Number: 1000015487

PATIENT
  Age: 85 Year
  Sex: Male

DRUGS (7)
  1. NEBIVOLOL HCL [Suspect]
     Indication: CARDIAC FAILURE
     Dosage: 5 MG (5 MG, 1 IN 1 D), ORAL
     Route: 048
  2. CORDARONE [Suspect]
     Dates: start: 20100423
  3. DILTIAZEM [Suspect]
     Dosage: 300 MG (300 MG, 1 IN 1 D), ORAL
     Route: 048
  4. SERETIDE [Concomitant]
  5. DIFFU K [Concomitant]
  6. COZAAR [Concomitant]
  7. PREVISCAN [Concomitant]

REACTIONS (5)
  - ANOXIA [None]
  - CARDIO-RESPIRATORY ARREST [None]
  - COMA [None]
  - ELECTROCARDIOGRAM QT PROLONGED [None]
  - TORSADE DE POINTES [None]
